FAERS Safety Report 7536746-6 (Version None)
Quarter: 2011Q2

REPORT INFORMATION
  Report Type: 
  Country: None (occurrence: None)
  Receive Date: 20110609
  Receipt Date: 20110601
  Transmission Date: 20111010
  Serious: Yes (Hospitalization, Other)
  Sender: FDA-Public Use
  Company Number: B0724975A

PATIENT
  Sex: Male

DRUGS (1)
  1. ACITRETIN [Suspect]
     Indication: PSORIASIS
     Route: 065
     Dates: start: 19980101

REACTIONS (4)
  - DIZZINESS [None]
  - TONGUE BITING [None]
  - CONVULSION [None]
  - TREMOR [None]
